FAERS Safety Report 14795564 (Version 2)
Quarter: 2018Q2

REPORT INFORMATION
  Report Type: Spontaneous
  Country: JP (occurrence: JP)
  Receive Date: 20180423
  Receipt Date: 20180613
  Transmission Date: 20180711
  Serious: Yes (Hospitalization)
  Sender: FDA-Public Use
  Company Number: JP-ANIPHARMA-2018-JP-000055

PATIENT
  Age: 68 Year
  Sex: Female

DRUGS (5)
  1. ARIMIDEX [Suspect]
     Active Substance: ANASTROZOLE
     Indication: BREAST CANCER FEMALE
     Dosage: 1MG DAILY
     Route: 048
     Dates: start: 201510
  2. CRESTOR [Concomitant]
     Active Substance: ROSUVASTATIN CALCIUM
     Dosage: 2.5MG DAILY
     Route: 048
  3. RISEDRONATE SODIUM. [Concomitant]
     Active Substance: RISEDRONATE SODIUM
     Dosage: 17.5MG WEEK
     Route: 065
     Dates: start: 201511
  4. EDIROL [Concomitant]
     Active Substance: ELDECALCITOL
     Dosage: 7.5MCG
     Route: 048
     Dates: start: 201511
  5. AMLODIPINE BESILATE [Concomitant]
     Active Substance: AMLODIPINE BESYLATE
     Dosage: 5MG DAILY
     Route: 048

REACTIONS (1)
  - Blood aldosterone increased [Not Recovered/Not Resolved]

NARRATIVE: CASE EVENT DATE: 201801
